FAERS Safety Report 8338982-8 (Version None)
Quarter: 2012Q2

REPORT INFORMATION
  Report Type: 
  Country: None (occurrence: None)
  Receive Date: 20120507
  Receipt Date: 20120420
  Transmission Date: 20120825
  Serious: Yes (Death)
  Sender: FDA-Public Use
  Company Number: JP-BAYER-2012-032417

PATIENT
  Age: 53 Year
  Sex: Male
  Weight: 86 kg

DRUGS (9)
  1. LOSARTAN POTASSIUM [Concomitant]
     Indication: HYPERTENSION
     Dosage: DAILY DOSE 100 MG
     Route: 048
     Dates: start: 20090407
  2. METFORMIN HYDROCHLORIDE [Concomitant]
     Indication: BLOOD GLUCOSE ABNORMAL
     Dosage: DAILY DOSE 750 MG
     Route: 048
     Dates: start: 20110711
  3. ADALAT CC [Suspect]
     Dosage: DAILY DOSE 60 MG
     Route: 048
     Dates: start: 20100529, end: 20120328
  4. DOXAZON [Concomitant]
     Indication: HYPERTENSION
     Dosage: DAILY DOSE 8 MG
     Route: 048
     Dates: start: 20100529
  5. GLUCOBAY [Suspect]
     Indication: TYPE 2 DIABETES MELLITUS
     Dosage: UNK
     Route: 048
     Dates: start: 20110711, end: 20120328
  6. PA [Concomitant]
     Indication: NASOPHARYNGITIS
     Dosage: DAILY DOSE 6 DF
     Route: 048
     Dates: start: 20120327
  7. MUCODYNE [Concomitant]
     Indication: NASOPHARYNGITIS
     Dosage: DAILY DOSE 1500 MG
     Route: 048
     Dates: start: 20120327
  8. MAOTO [Concomitant]
     Indication: NASOPHARYNGITIS
     Dosage: DAILY DOSE 7.5 G
     Route: 048
     Dates: start: 20120327
  9. JANUVIA [Concomitant]
     Indication: BLOOD GLUCOSE ABNORMAL
     Dosage: DAILY DOSE 100 MG
     Route: 048
     Dates: start: 20110421

REACTIONS (1)
  - DEATH [None]
